FAERS Safety Report 5933348-X (Version None)
Quarter: 2008Q4

REPORT INFORMATION
  Report Type: 
  Country: None (occurrence: None)
  Receive Date: 20081023
  Receipt Date: 20081010
  Transmission Date: 20090506
  Serious: Yes (Other)
  Sender: FDA-Public Use
  Company Number: TRP_01043_2008

PATIENT
  Sex: Male
  Weight: 72.6 kg

DRUGS (4)
  1. RIBASPHERE [Suspect]
     Indication: HEPATITIS C
     Dosage: (1000 MG  ORAL), (800 MG ORAL)
     Route: 048
     Dates: end: 20080726
  2. RIBASPHERE [Suspect]
     Indication: HEPATITIS C
     Dosage: (1000 MG  ORAL), (800 MG ORAL)
     Route: 048
     Dates: start: 20071011
  3. PEGASYS [Suspect]
     Indication: HEPATITIS C
     Dosage: (135 ?G  SUBCUTANEOUS), ( 90 ?G SUBCUTANEOUS)
     Route: 058
     Dates: end: 20080726
  4. PEGASYS [Suspect]
     Indication: HEPATITIS C
     Dosage: (135 ?G  SUBCUTANEOUS), ( 90 ?G SUBCUTANEOUS)
     Route: 058
     Dates: start: 20071011

REACTIONS (13)
  - ABDOMINAL DISCOMFORT [None]
  - BONE PAIN [None]
  - DYSARTHRIA [None]
  - GASTROENTERITIS VIRAL [None]
  - GLOSSODYNIA [None]
  - HEADACHE [None]
  - MALIGNANT MELANOMA [None]
  - ORAL PAIN [None]
  - PSORIASIS [None]
  - RASH [None]
  - RED BLOOD CELL COUNT DECREASED [None]
  - VOMITING [None]
  - WEIGHT DECREASED [None]
